FAERS Safety Report 8801745 (Version 1)
Quarter: 2012Q4

REPORT INFORMATION
  Report Type: 
  Country: US (occurrence: US)
  Receive Date: 20120921
  Receipt Date: 20120921
  Transmission Date: 20130627
  Serious: No
  Sender: FDA-Public Use
  Company Number: US-PFIZER INC-2012230971

PATIENT
  Age: 71 Year
  Sex: Male
  Weight: 74.83 kg

DRUGS (3)
  1. VIAGRA [Suspect]
     Indication: ERECTILE DYSFUNCTION
     Dosage: 50 mg, as needed
  2. VIAGRA [Suspect]
     Dosage: 100 mg, as needed
     Dates: start: 2012, end: 201209
  3. SIMVASTATIN [Concomitant]
     Indication: BLOOD CHOLESTEROL ABNORMAL
     Dosage: 5 mg,daily

REACTIONS (1)
  - Drug ineffective [Unknown]
